FAERS Safety Report 11989373 (Version 2)
Quarter: 2016Q1

REPORT INFORMATION
  Report Type: Report from Study
  Country: US (occurrence: US)
  Receive Date: 20160202
  Receipt Date: 20160314
  Transmission Date: 20160526
  Serious: Yes (Other)
  Sender: FDA-Public Use
  Company Number: US-TEVA-629924USA

PATIENT
  Age: 59 Year
  Sex: Female

DRUGS (1)
  1. COPAXONE [Suspect]
     Active Substance: GLATIRAMER ACETATE
     Indication: MULTIPLE SCLEROSIS
     Route: 058
     Dates: start: 20151105

REACTIONS (11)
  - Flushing [Recovered/Resolved]
  - Dyspnoea [Recovered/Resolved]
  - Skin odour abnormal [Recovered/Resolved]
  - Pyrexia [Recovered/Resolved]
  - Muscle tightness [Recovered/Resolved]
  - Muscle twitching [Recovered/Resolved]
  - Varicella [Recovered/Resolved]
  - Chills [Recovered/Resolved]
  - Chest discomfort [Recovered/Resolved]
  - Drug hypersensitivity [Recovered/Resolved]
  - Pain [Recovered/Resolved]

NARRATIVE: CASE EVENT DATE: 20160120
